FAERS Safety Report 10168755 (Version 1)
Quarter: 2014Q2

REPORT INFORMATION
  Report Type: Spontaneous
  Country: GB (occurrence: GB)
  Receive Date: 20140513
  Receipt Date: 20140513
  Transmission Date: 20141212
  Serious: Yes (Disabling)
  Sender: FDA-Public Use
  Company Number: PHHY2014GB057152

PATIENT
  Age: 71 Year
  Sex: Female

DRUGS (3)
  1. METRONIDAZOLE [Suspect]
     Indication: SMALL INTESTINAL BACTERIAL OVERGROWTH
     Route: 048
  2. CIPROFLOXACIN [Suspect]
     Indication: SMALL INTESTINAL BACTERIAL OVERGROWTH
     Route: 048
  3. RIFAXIMIN [Suspect]
     Indication: SMALL INTESTINAL BACTERIAL OVERGROWTH
     Route: 048

REACTIONS (1)
  - Deafness [Unknown]
